FAERS Safety Report 7196582-X (Version None)
Quarter: 2010Q4

REPORT INFORMATION
  Report Type: 
  Country: None (occurrence: None)
  Receive Date: 20101223
  Receipt Date: 20101027
  Transmission Date: 20110411
  Serious: No
  Sender: FDA-Public Use
  Company Number: US-AMGEN-USASP2010002710

PATIENT

DRUGS (3)
  1. ENBREL [Suspect]
     Indication: PROSTATIC SPECIFIC ANTIGEN
     Dosage: 50 MG, QWK
     Dates: start: 20100801
  2. METHOTREXATE (TREXALL) [Concomitant]
     Dosage: 3 MG, QWK
     Dates: start: 19920101
  3. ZITROMAX [Concomitant]

REACTIONS (3)
  - INCREASED UPPER AIRWAY SECRETION [None]
  - NASOPHARYNGITIS [None]
  - PRODUCTIVE COUGH [None]
